FAERS Safety Report 5114547-6 (Version None)
Quarter: 2006Q3

REPORT INFORMATION
  Report Type: 
  Country: None (occurrence: None)
  Receive Date: 20060922
  Receipt Date: 20060922
  Transmission Date: 20061208
  Serious: Yes (Hospitalization)
  Sender: FDA-Public Use
  Company Number: None

PATIENT
  Age: 56 Year
  Sex: Male
  Weight: 69.8539 kg

DRUGS (19)
  1. WARFARIN SODIUM [Suspect]
     Indication: DEEP VEIN THROMBOSIS
     Dosage: 5 MG   DAILY   PO
     Route: 048
     Dates: start: 20060903, end: 20060921
  2. ALPRAZOLAM [Concomitant]
  3. ASPIRIN [Concomitant]
  4. CALCIUM ACETATE [Concomitant]
  5. CINACALCET HCL [Concomitant]
  6. CITALOPRAM HYDROBROMIDE [Concomitant]
  7. CLONIDINE [Concomitant]
  8. DIPHENHYDRAMINE HCL [Concomitant]
  9. DOCUSATE NA [Concomitant]
  10. FELODIPINE [Concomitant]
  11. HYDRALAZINE [Concomitant]
  12. HYDROCHLOROTHIAZIDE [Concomitant]
  13. HYDROCODONE [Concomitant]
  14. METHADONE HCL [Concomitant]
  15. MEOTPOROLOL [Concomitant]
  16. PROMETHAZINE [Concomitant]
  17. RANITIDINE [Concomitant]
  18. VARDENAFIL [Concomitant]
  19. WARFARIN SODIUM [Concomitant]

REACTIONS (6)
  - DIZZINESS [None]
  - DIZZINESS POSTURAL [None]
  - FAECAL INCONTINENCE [None]
  - GAIT DISTURBANCE [None]
  - LOSS OF CONSCIOUSNESS [None]
  - MELAENA [None]
